FAERS Safety Report 9117207 (Version 3)
Quarter: 2015Q2

REPORT INFORMATION
  Report Type: Report from Study
  Country: GB (occurrence: GB)
  Receive Date: 20130128
  Receipt Date: 20150511
  Transmission Date: 20150821
  Serious: Yes (Hospitalization)
  Sender: FDA-Public Use
  Company Number: GB-ROCHE-1184396

PATIENT
  Age: 65 Year
  Sex: Male

DRUGS (4)
  1. CAPECITABINE. [Suspect]
     Active Substance: CAPECITABINE
     Indication: GASTRIC CANCER
     Dosage: MOST RECENT DOSE: 22/FEB/2012
     Route: 048
     Dates: start: 20111221
  2. CISPLATIN. [Suspect]
     Active Substance: CISPLATIN
     Indication: GASTRIC CANCER
     Dosage: MOST RECENT DOSE: 01/FEB/2012
     Route: 042
     Dates: start: 20111221
  3. EPIRUBICIN [Suspect]
     Active Substance: EPIRUBICIN
     Indication: GASTRIC CANCER
     Dosage: MOST RECENT DOSE: 01/FEB/2012
     Route: 042
     Dates: start: 20111221
  4. BEVACIZUMAB [Suspect]
     Active Substance: BEVACIZUMAB
     Indication: GASTRIC CANCER
     Dosage: MOST RECENT DOSE: 01/FEB/2012
     Route: 042
     Dates: start: 20111221

REACTIONS (1)
  - Dysphagia [Recovered/Resolved with Sequelae]

NARRATIVE: CASE EVENT DATE: 20120609
